FAERS Safety Report 21165379 (Version 2)
Quarter: 2022Q3

REPORT INFORMATION
  Report Type: Spontaneous
  Country: GB (occurrence: None)
  Receive Date: 20220803
  Receipt Date: 20220810
  Transmission Date: 20221027
  Serious: Yes (Hospitalization, Other)
  Sender: FDA-Public Use
  Company Number: GB-ROCHE-3151327

PATIENT
  Age: 60 Year
  Sex: Male
  Weight: 76 kg

DRUGS (2)
  1. HERCEPTIN [Suspect]
     Active Substance: TRASTUZUMAB
     Indication: Colorectal cancer metastatic
     Route: 041
     Dates: start: 20220624
  2. PERJETA [Suspect]
     Active Substance: PERTUZUMAB
     Indication: Colorectal cancer metastatic
     Route: 042
     Dates: start: 20220623

REACTIONS (4)
  - Infusion related reaction [Recovered/Resolved]
  - Sepsis [Unknown]
  - Vascular device infection [Unknown]
  - White blood cell count increased [Unknown]

NARRATIVE: CASE EVENT DATE: 20220624
